FAERS Safety Report 19821966 (Version 1)
Quarter: 2021Q3

REPORT INFORMATION
  Report Type: Spontaneous
  Country: US (occurrence: US)
  Receive Date: 20210913
  Receipt Date: 20210913
  Transmission Date: 20211014
  Serious: Yes (Other)
  Sender: FDA-Public Use
  Company Number: None

PATIENT
  Sex: Female

DRUGS (19)
  1. HYDROXYCHLR [Concomitant]
  2. TRAZODONE [Concomitant]
     Active Substance: TRAZODONE HYDROCHLORIDE
  3. ATORVASTATIN [Concomitant]
     Active Substance: ATORVASTATIN
  4. DOXYCYC MONO [Concomitant]
     Active Substance: DOXYCYCLINE
  5. LEVOTHYROXINE. [Concomitant]
     Active Substance: LEVOTHYROXINE
  6. BUPREN/NALOX MIS [Concomitant]
  7. XIIDRA [Concomitant]
     Active Substance: LIFITEGRAST
  8. ALBUTEROL. [Concomitant]
     Active Substance: ALBUTEROL
  9. MELOXICAM. [Concomitant]
     Active Substance: MELOXICAM
  10. METHOCARBAM [Concomitant]
     Active Substance: METHOCARBAMOL
  11. HUMIRA [Suspect]
     Active Substance: ADALIMUMAB
     Indication: RHEUMATOID ARTHRITIS
     Dosage: OTHER FREQUENCY:QOWK;?
     Route: 058
     Dates: start: 20200716
  12. CLOPIDOGREL [Concomitant]
     Active Substance: CLOPIDOGREL BISULFATE
  13. DULOXETINE. [Concomitant]
     Active Substance: DULOXETINE
  14. OLANDZAPINE [Concomitant]
  15. LISINORPRIL [Concomitant]
     Active Substance: LISINOPRIL
  16. GUANFACINE. [Concomitant]
     Active Substance: GUANFACINE
  17. QUETIAPINE. [Concomitant]
     Active Substance: QUETIAPINE
  18. BYSTOLIC [Concomitant]
     Active Substance: NEBIVOLOL HYDROCHLORIDE
  19. TRELEGY ELLIPTA [Concomitant]
     Active Substance: FLUTICASONE FUROATE\UMECLIDINIUM BROMIDE\VILANTEROL TRIFENATATE

REACTIONS (3)
  - Memory impairment [None]
  - Therapy interrupted [None]
  - Neoplasm malignant [None]
